FAERS Safety Report 25875082 (Version 1)
Quarter: 2025Q4

REPORT INFORMATION
  Report Type: Spontaneous
  Country: EU (occurrence: EU)
  Receive Date: 20251003
  Receipt Date: 20251003
  Transmission Date: 20260117
  Serious: No
  Sender: SANOFI AVENTIS
  Company Number: EU-SANOFI-02665382

PATIENT
  Age: 42 Year
  Sex: Female

DRUGS (1)
  1. ARAVA [Suspect]
     Active Substance: LEFLUNOMIDE
     Dosage: UNK
     Dates: end: 2025

REACTIONS (1)
  - Maternal exposure before pregnancy [Unknown]

NARRATIVE: CASE EVENT DATE: 20250101
